FAERS Safety Report 11529861 (Version 2)
Quarter: 2017Q4

REPORT INFORMATION
  Report Type: Spontaneous
  Country: US (occurrence: US)
  Receive Date: 20150921
  Receipt Date: 20171023
  Transmission Date: 20180320
  Serious: No
  Sender: FDA-Public Use
  Company Number: US-FRI-1000078057

PATIENT
  Age: 44 Year
  Sex: Female

DRUGS (12)
  1. NALOXEGOL [Concomitant]
     Active Substance: NALOXEGOL
     Indication: CONSTIPATION
     Dosage: 25 MG, QD
     Route: 048
     Dates: start: 201612
  2. OMEPRAZOLE. [Concomitant]
     Active Substance: OMEPRAZOLE
     Indication: DYSPEPSIA
     Dosage: UNK UNK, QD
     Route: 048
  3. ASTELIN                            /00085801/ [Concomitant]
     Active Substance: AZELASTINE HYDROCHLORIDE
     Indication: SEASONAL ALLERGY
     Dosage: UNK UNK, QD
     Route: 045
  4. PERCOCET                           /00446701/ [Concomitant]
     Active Substance: ACETAMINOPHEN\OXYCODONE HYDROCHLORIDE\OXYCODONE TEREPHTHALATE
     Indication: BACK PAIN
     Dosage: 7.25 MG, QD
     Route: 048
  5. SENOKOT-S [Concomitant]
     Active Substance: DOCUSATE SODIUM\SENNOSIDES
     Indication: ABNORMAL FAECES
     Dosage: UNK UNK, PRN
     Route: 048
  6. QNASL [Concomitant]
     Active Substance: BECLOMETHASONE DIPROPIONATE
     Indication: SEASONAL ALLERGY
     Dosage: UNK UNK, QD
     Route: 045
  7. LINZESS [Suspect]
     Active Substance: LINACLOTIDE
     Indication: CONSTIPATION
     Dosage: 145 ?G, QD
     Route: 048
     Dates: start: 20150630
  8. LINZESS [Suspect]
     Active Substance: LINACLOTIDE
     Indication: CONSTIPATION
     Dosage: UNK
     Route: 048
     Dates: start: 201701
  9. DOCUSATE SODIUM. [Concomitant]
     Active Substance: DOCUSATE SODIUM
     Indication: ABNORMAL FAECES
     Dosage: UNK UNK, PRN
     Route: 048
  10. FLEET GLYCERINE [Concomitant]
     Indication: ABNORMAL FAECES
     Dosage: UNK UNK, PRN
     Route: 048
  11. ALLEGRA [Concomitant]
     Active Substance: FEXOFENADINE HYDROCHLORIDE
     Indication: SEASONAL ALLERGY
     Dosage: UNK UNK, QD
     Route: 048
  12. ZYRTEC [Concomitant]
     Active Substance: CETIRIZINE HYDROCHLORIDE
     Indication: SEASONAL ALLERGY
     Dosage: UNK UNK, QD
     Route: 048

REACTIONS (7)
  - Drug dose omission [Unknown]
  - Flatulence [Recovered/Resolved]
  - Drug ineffective [Unknown]
  - Off label use [Unknown]
  - Epigastric discomfort [Recovered/Resolved]
  - Diarrhoea [Recovered/Resolved]
  - Wrong technique in product usage process [Unknown]

NARRATIVE: CASE EVENT DATE: 20150630
